FAERS Safety Report 7624284-1 (Version None)
Quarter: 2011Q3

REPORT INFORMATION
  Report Type: 
  Country: None (occurrence: None)
  Receive Date: 20110720
  Receipt Date: 20110111
  Transmission Date: 20111222
  Serious: Yes (Other)
  Sender: FDA-Public Use
  Company Number: US-BAYER-200934794NA

PATIENT
  Age: 63 Year
  Sex: Female
  Weight: 72.562 kg

DRUGS (12)
  1. RYTHMOL [Concomitant]
     Dosage: 10 MG, UNK
  2. LASIX [Concomitant]
     Dosage: UNK
     Route: 048
     Dates: start: 20021001
  3. VERSED [Concomitant]
     Dosage: 3 MG, UNK
     Route: 042
     Dates: start: 20030923
  4. PREMARIN [Concomitant]
     Dosage: 2.5 MG, UNK
     Route: 048
     Dates: start: 19880901
  5. EPINEPHRINE [Concomitant]
     Dosage: 10 ML, UNK
     Route: 042
     Dates: start: 20030923, end: 20030923
  6. PROPOFOL [Concomitant]
     Dosage: 15MCG/KG/MIN
     Route: 042
     Dates: start: 20030923
  7. LEVOXYL [Concomitant]
     Dosage: 0.75 MG, UNK
     Route: 048
     Dates: start: 19590801
  8. DEMADEX [Concomitant]
     Dosage: 20 MG, UNK
  9. TRASYLOL [Suspect]
     Indication: MITRAL VALVE REPAIR
     Dosage: UNK
     Route: 042
     Dates: start: 20030923, end: 20030923
  10. COUMADIN [Concomitant]
     Dosage: UNK
     Route: 048
     Dates: start: 20020201, end: 20030901
  11. CORDARONE [Concomitant]
     Dosage: 200 MG, UNK
     Route: 048
  12. POTASSIUM CHLORIDE [Concomitant]
     Dosage: 20 MEQ, UNK

REACTIONS (9)
  - DEPRESSION [None]
  - PAIN [None]
  - ANXIETY [None]
  - INJURY [None]
  - MULTI-ORGAN FAILURE [None]
  - EMOTIONAL DISTRESS [None]
  - FEAR [None]
  - RENAL FAILURE [None]
  - NERVOUSNESS [None]
